FAERS Safety Report 5969462-2 (Version None)
Quarter: 2008Q4

REPORT INFORMATION
  Report Type: 
  Country: None (occurrence: None)
  Receive Date: 20081126
  Receipt Date: 20080905
  Transmission Date: 20090506
  Serious: No
  Sender: FDA-Public Use
  Company Number: US-ABBOTT-08P-163-0474703-00

PATIENT
  Sex: Female

DRUGS (10)
  1. SIMCOR [Suspect]
     Indication: BLOOD TRIGLYCERIDES INCREASED
     Dosage: 500MG/20MG, AT BEDTIME
     Route: 048
     Dates: start: 20080902, end: 20080904
  2. SIMCOR [Suspect]
     Indication: HIGH DENSITY LIPOPROTEIN DECREASED
  3. SIMCOR [Suspect]
     Indication: LOW DENSITY LIPOPROTEIN INCREASED
  4. METFORMIN HCL [Concomitant]
     Indication: DRUG USE FOR UNKNOWN INDICATION
  5. EXENATIDE [Concomitant]
     Indication: DRUG USE FOR UNKNOWN INDICATION
  6. PIOGLITAZONE HYDROCHLORIDE [Concomitant]
     Indication: DRUG USE FOR UNKNOWN INDICATION
  7. OLMESARTAN MEDOXOMIL [Concomitant]
     Indication: DRUG USE FOR UNKNOWN INDICATION
  8. PAROXETINE HCL [Concomitant]
     Indication: DRUG USE FOR UNKNOWN INDICATION
  9. ESOMEPRAZOLE SODIUM [Concomitant]
     Indication: DRUG USE FOR UNKNOWN INDICATION
  10. GLIMEPIRIDE [Concomitant]
     Indication: DRUG USE FOR UNKNOWN INDICATION

REACTIONS (5)
  - ABDOMINAL DISCOMFORT [None]
  - BLOOD GLUCOSE INCREASED [None]
  - DIARRHOEA [None]
  - HEAD DISCOMFORT [None]
  - MUSCLE SPASMS [None]
